FAERS Safety Report 6149517-2 (Version None)
Quarter: 2009Q2

REPORT INFORMATION
  Report Type: 
  Country: None (occurrence: None)
  Receive Date: 20090409
  Receipt Date: 20090331
  Transmission Date: 20091009
  Serious: Yes (Hospitalization)
  Sender: FDA-Public Use
  Company Number: US-BAYER-200912038NA

PATIENT
  Age: 49 Year
  Sex: Female

DRUGS (9)
  1. AVELOX [Suspect]
     Indication: COUGH
     Dosage: TOTAL DAILY DOSE: 400 MG  UNIT DOSE: 400 MG
     Dates: start: 20051101
  2. FLOVENT [Suspect]
     Indication: COUGH
     Dates: start: 20051101
  3. GLUCOPHAGE [Concomitant]
     Dosage: TOTAL DAILY DOSE: 500 MG  UNIT DOSE: 500 MG
     Route: 048
  4. ALBUTEROL [Concomitant]
     Dosage: TOTAL DAILY DOSE: 4 PUFF  UNIT DOSE: 1 PUFF
  5. SINGULAIR [Concomitant]
  6. ROCEPHIN [Concomitant]
     Route: 030
     Dates: start: 20051101
  7. DEPO-MEDROL [Concomitant]
     Dates: start: 20050101
  8. DECADRON [Concomitant]
     Route: 030
     Dates: start: 20051101
  9. POTASSIUM CHLORIDE [Concomitant]
     Dosage: TOTAL DAILY DOSE: 20 MEQ

REACTIONS (13)
  - ASTHENIA [None]
  - BLOOD PRESSURE INCREASED [None]
  - BURNING SENSATION [None]
  - COLD SWEAT [None]
  - EXTRASYSTOLES [None]
  - HEART RATE INCREASED [None]
  - HYPERHIDROSIS [None]
  - MALAISE [None]
  - NAUSEA [None]
  - PALPITATIONS [None]
  - SUPRAVENTRICULAR TACHYCARDIA [None]
  - SYNCOPE [None]
  - VENTRICULAR EXTRASYSTOLES [None]
